FAERS Safety Report 4983262-1 (Version None)
Quarter: 2006Q2

REPORT INFORMATION
  Report Type: 
  Country: None (occurrence: None)
  Receive Date: 20060419
  Receipt Date: 20060327
  Transmission Date: 20061013
  Serious: Yes (Death)
  Sender: FDA-Public Use
  Company Number: JP200603006438

PATIENT
  Age: 75 Year
  Sex: Female

DRUGS (2)
  1. HUMALOG MIX 75/25 [Suspect]
     Indication: DIABETES MELLITUS
  2. HUMALOG MIX 25L/75NPL PEN (HUMALOG MIX 25L/75NPL PEN) PEN, DISPOSABLE [Concomitant]

REACTIONS (1)
  - METASTATIC NEOPLASM [None]
